FAERS Safety Report 6825600-0 (Version None)
Quarter: 2010Q3

REPORT INFORMATION
  Report Type: 
  Country: None (occurrence: None)
  Receive Date: 20100708
  Receipt Date: 20070529
  Transmission Date: 20110219
  Serious: No
  Sender: FDA-Public Use
  Company Number: US-PFIZER INC-2006126999

PATIENT
  Sex: Female
  Weight: 69.85 kg

DRUGS (4)
  1. CHANTIX [Suspect]
     Indication: SMOKING CESSATION THERAPY
     Dates: start: 20060911
  2. ALL OTHER THERAPEUTIC PRODUCTS [Concomitant]
  3. SPIRIVA [Concomitant]
  4. VITAMINS [Concomitant]

REACTIONS (21)
  - ABDOMINAL DISTENSION [None]
  - ABDOMINAL PAIN [None]
  - BLOOD CHOLESTEROL INCREASED [None]
  - BLOOD TRIGLYCERIDES INCREASED [None]
  - DEPRESSION [None]
  - EPSTEIN-BARR VIRUS INFECTION [None]
  - FATIGUE [None]
  - FEELING ABNORMAL [None]
  - FEELING HOT [None]
  - FLATULENCE [None]
  - HEADACHE [None]
  - HUNGER [None]
  - HYPERHIDROSIS [None]
  - INFECTIOUS MONONUCLEOSIS [None]
  - MOOD ALTERED [None]
  - NAUSEA [None]
  - NOCTURIA [None]
  - PHARYNGEAL MASS [None]
  - POLLAKIURIA [None]
  - SOMNOLENCE [None]
  - WEIGHT INCREASED [None]
